FAERS Safety Report 20550816 (Version 1)
Quarter: 2022Q1

REPORT INFORMATION
  Report Type: Spontaneous
  Country: DE (occurrence: DE)
  Receive Date: 20220304
  Receipt Date: 20220304
  Transmission Date: 20220423
  Serious: Yes (Other)
  Sender: FDA-Public Use
  Company Number: DE-Laboratoires BESINS-INTERNATIONAL-2022-17419

PATIENT
  Age: 58 Year
  Sex: Female
  Weight: 66 kg

DRUGS (4)
  1. ESTRADIOL [Suspect]
     Active Substance: ESTRADIOL
     Indication: Product used for unknown indication
     Dosage: 1 STROKE
     Route: 065
     Dates: start: 20220210, end: 202202
  2. PROGESTERONE [Suspect]
     Active Substance: PROGESTERONE
     Indication: Product used for unknown indication
     Route: 065
     Dates: start: 20220209, end: 202202
  3. ESTRIOL [Suspect]
     Active Substance: ESTRIOL
     Indication: Product used for unknown indication
     Dosage: OEKOLP-CREME CREAM, THERAPY END DATE: ASKU
     Route: 065
     Dates: start: 2016
  4. ESTRIOL [Suspect]
     Active Substance: ESTRIOL
     Dates: start: 2018

REACTIONS (6)
  - Arrhythmia [Unknown]
  - Heart rate increased [Unknown]
  - Dizziness [Unknown]
  - Muscle tightness [Unknown]
  - Migraine [Unknown]
  - Headache [Unknown]

NARRATIVE: CASE EVENT DATE: 20220210
